FAERS Safety Report 7001510-3 (Version None)
Quarter: 2010Q3

REPORT INFORMATION
  Report Type: 
  Country: None (occurrence: None)
  Receive Date: 20100920
  Receipt Date: 20100916
  Transmission Date: 20110219
  Serious: Yes (Death)
  Sender: FDA-Public Use
  Company Number: JP-SANOFI-AVENTIS-2010SA055822

PATIENT
  Age: 16 Year
  Weight: 65 kg

DRUGS (1)
  1. RASBURICASE [Suspect]
     Indication: HYPERURICAEMIA
     Route: 042
     Dates: start: 20100914, end: 20100915

REACTIONS (1)
  - DISEASE PROGRESSION [None]
